FAERS Safety Report 12295218 (Version 1)
Quarter: 2016Q2

REPORT INFORMATION
  Report Type: Spontaneous
  Country: US (occurrence: US)
  Receive Date: 20160422
  Receipt Date: 20160422
  Transmission Date: 20160815
  Serious: No
  Sender: FDA-Public Use
  Company Number: US-GLAXOSMITHKLINE-US2016053934

PATIENT
  Age: 19 Year
  Sex: Male

DRUGS (2)
  1. INVEGA SUSTENNA [Concomitant]
     Active Substance: PALIPERIDONE PALMITATE
  2. TANZEUM [Suspect]
     Active Substance: ALBIGLUTIDE
     Indication: TYPE 2 DIABETES MELLITUS
     Dates: start: 20160118, end: 20160403

REACTIONS (2)
  - Weight decreased [Not Recovered/Not Resolved]
  - Vomiting [Recovering/Resolving]

NARRATIVE: CASE EVENT DATE: 2016
